FAERS Safety Report 7026181-1 (Version None)
Quarter: 2010Q4

REPORT INFORMATION
  Report Type: 
  Country: None (occurrence: None)
  Receive Date: 20101004
  Receipt Date: 20100922
  Transmission Date: 20110411
  Serious: No
  Sender: FDA-Public Use
  Company Number: 2009BI006862

PATIENT
  Sex: Male

DRUGS (2)
  1. TYSABRI [Suspect]
     Indication: MULTIPLE SCLEROSIS
     Route: 042
     Dates: start: 20090102
  2. CARBAMAZEPINE [Concomitant]
     Indication: HYPOAESTHESIA
     Route: 048
     Dates: start: 20090420, end: 20090422

REACTIONS (10)
  - AMNESIA [None]
  - ASTHENIA [None]
  - CHEST PAIN [None]
  - FATIGUE [None]
  - GENERAL SYMPTOM [None]
  - HEADACHE [None]
  - HYPOAESTHESIA [None]
  - MALAISE [None]
  - MEMORY IMPAIRMENT [None]
  - SOMNOLENCE [None]
